FAERS Safety Report 16958215 (Version 1)
Quarter: 2019Q4

REPORT INFORMATION
  Report Type: Spontaneous
  Country: US (occurrence: US)
  Receive Date: 20190906
  Receipt Date: 20190906
  Transmission Date: 20200122
  Serious: Yes (Other)
  Sender: FDA-Public Use
  Company Number: None

PATIENT
  Age: 66 Year
  Sex: Male
  Weight: 76.2 kg

DRUGS (1)
  1. NEOMYCIN. [Suspect]
     Active Substance: NEOMYCIN
     Indication: INFECTION
     Dates: start: 20190725, end: 20190813

REACTIONS (5)
  - Motor dysfunction [None]
  - Hemiplegia [None]
  - Muscle spasms [None]
  - Tremor [None]
  - Gait disturbance [None]

NARRATIVE: CASE EVENT DATE: 20190819
